FAERS Safety Report 10993593 (Version 1)
Quarter: 2015Q2

REPORT INFORMATION
  Report Type: Spontaneous
  Country: US (occurrence: None)
  Receive Date: 20150406
  Receipt Date: 20150406
  Transmission Date: 20150821
  Serious: Yes (Disabling)
  Sender: FDA-Public Use
  Company Number: None

PATIENT
  Age: 37 Year
  Sex: Female
  Weight: 59.88 kg

DRUGS (4)
  1. BENADRYL [Concomitant]
     Active Substance: DIPHENHYDRAMINE HYDROCHLORIDE
  2. MULTIVITAMIN [Concomitant]
     Active Substance: VITAMINS
  3. FLUTICASONE PROPIONATE. [Suspect]
     Active Substance: FLUTICASONE PROPIONATE
     Indication: MULTIPLE ALLERGIES
     Dosage: ONE SPRAY
     Route: 055
  4. ATIVAN [Concomitant]
     Active Substance: LORAZEPAM

REACTIONS (1)
  - Anosmia [None]

NARRATIVE: CASE EVENT DATE: 20150404
